FAERS Safety Report 7314269-7 (Version None)
Quarter: 2011Q1

REPORT INFORMATION
  Report Type: 
  Country: None (occurrence: None)
  Receive Date: 20110225
  Receipt Date: 20100629
  Transmission Date: 20110831
  Serious: No
  Sender: FDA-Public Use
  Company Number: US-MYLANLABS-2010S1011602

PATIENT
  Age: 19 Year
  Sex: Female

DRUGS (2)
  1. YASMIN [Concomitant]
  2. AMNESTEEM [Suspect]
     Indication: ACNE
     Route: 048
     Dates: start: 20100528, end: 20100628

REACTIONS (3)
  - NIGHT BLINDNESS [None]
  - ABDOMINAL PAIN UPPER [None]
  - CRYING [None]
